FAERS Safety Report 7991736-4 (Version None)
Quarter: 2011Q4

REPORT INFORMATION
  Report Type: 
  Country: None (occurrence: None)
  Receive Date: 20111219
  Receipt Date: 20111216
  Transmission Date: 20120403
  Serious: Yes (Other)
  Sender: FDA-Public Use
  Company Number: US-ROCHE-1022797

PATIENT
  Sex: Female

DRUGS (4)
  1. ACCUTANE [Suspect]
     Dates: start: 20011214
  2. ACCUTANE [Suspect]
     Indication: PRODUCT USED FOR UNKNOWN INDICATION
     Dates: start: 20010619
  3. ACCUTANE [Suspect]
     Dates: start: 20010830
  4. ACCUTANE [Suspect]
     Dates: start: 20010729

REACTIONS (2)
  - DIVERTICULITIS [None]
  - INFLAMMATORY BOWEL DISEASE [None]
